FAERS Safety Report 7407629-7 (Version None)
Quarter: 2011Q2

REPORT INFORMATION
  Report Type: 
  Country: None (occurrence: None)
  Receive Date: 20110401
  Receipt Date: 20110314
  Transmission Date: 20111010
  Serious: Yes (Other)
  Sender: FDA-Public Use
  Company Number: 2011030131

PATIENT
  Age: 15 Year
  Sex: Male

DRUGS (1)
  1. FELBAMATE [Suspect]
     Indication: LENNOX-GASTAUT SYNDROME

REACTIONS (1)
  - NEPHROLITHIASIS [None]
